FAERS Safety Report 25256037 (Version 1)
Quarter: 2025Q2

REPORT INFORMATION
  Report Type: Spontaneous
  Country: GB (occurrence: GB)
  Receive Date: 20250430
  Receipt Date: 20250430
  Transmission Date: 20250716
  Serious: Yes (Other)
  Sender: ELI LILLY AND COMPANY
  Company Number: GB-ELI_LILLY_AND_COMPANY-GB202504018832

PATIENT
  Sex: Female

DRUGS (1)
  1. MOUNJARO [Suspect]
     Active Substance: TIRZEPATIDE
     Indication: Product used for unknown indication
     Route: 065
     Dates: start: 202409, end: 202502

REACTIONS (11)
  - Loss of consciousness [Unknown]
  - Gastrointestinal disorder [Unknown]
  - Alopecia [Unknown]
  - Blood folate decreased [Unknown]
  - Dizziness [Unknown]
  - Decreased appetite [Unknown]
  - Vitamin B12 decreased [Unknown]
  - Blood iron decreased [Unknown]
  - Eructation [Unknown]
  - Diarrhoea [Unknown]
  - Dyspepsia [Unknown]
